FAERS Safety Report 4803136-6 (Version None)
Quarter: 2005Q4

REPORT INFORMATION
  Report Type: 
  Country: None (occurrence: None)
  Receive Date: 20051013
  Receipt Date: 20050923
  Transmission Date: 20060501
  Serious: Yes (Disabling)
  Sender: FDA-Public Use
  Company Number: USA0509108957

PATIENT
  Age: 47 Year
  Sex: Male

DRUGS (4)
  1. HUMALOG [Suspect]
     Indication: DIABETES MELLITUS
  2. HUMULIN N [Suspect]
     Indication: DIABETES MELLITUS
     Dosage: 54 U
  3. HUMULIN R [Suspect]
     Indication: DIABETES MELLITUS
     Dosage: 18 U
  4. LANTUS [Concomitant]

REACTIONS (2)
  - CARDIAC FAILURE [None]
  - SHOULDER OPERATION [None]
